FAERS Safety Report 5446786-9 (Version None)
Quarter: 2007Q3

REPORT INFORMATION
  Report Type: 
  Country: None (occurrence: None)
  Receive Date: 20070907
  Receipt Date: 20070829
  Transmission Date: 20080115
  Serious: Yes (Hospitalization, Other)
  Sender: FDA-Public Use
  Company Number: JP-PFIZER INC-2007072504

PATIENT
  Age: 46 Year
  Sex: Female

DRUGS (5)
  1. SOLU-MEDROL [Suspect]
     Indication: IMMUNOSUPPRESSION
     Dosage: DAILY DOSE:1GRAM
     Route: 042
  2. SOLU-MEDROL [Suspect]
     Indication: TRANSPLANT REJECTION
  3. BASILIXIMAB [Concomitant]
  4. TACROLIMUS [Concomitant]
  5. MYCOPHENOLATE MOFETIL [Concomitant]

REACTIONS (3)
  - PNEUMONIA HERPES VIRAL [None]
  - TRANSPLANT REJECTION [None]
  - VARICELLA [None]
